FAERS Safety Report 9017816 (Version 1)
Quarter: 2013Q1

REPORT INFORMATION
  Report Type: Spontaneous
  Country: BR (occurrence: BR)
  Receive Date: 20130118
  Receipt Date: 20130118
  Transmission Date: 20140127
  Serious: Yes (Hospitalization, Other)
  Sender: FDA-Public Use
  Company Number: BR-BRISTOL-MYERS SQUIBB COMPANY-17289174

PATIENT
  Age: 38 Year
  Sex: Male
  Weight: 70 kg

DRUGS (6)
  1. COUMADIN TABS [Suspect]
     Indication: ANTICOAGULANT THERAPY
     Dosage: 25.MG ON MONDAY THROUGH FRIDAY AND 5MG FROM SATURDAY TO SUNDAY.
     Route: 048
     Dates: start: 2005
  2. CAPTOPRIL [Concomitant]
  3. ENALAPRIL [Concomitant]
  4. AMLODIPINE [Concomitant]
  5. HIDANTAL [Concomitant]
  6. PROPRANOLOL [Concomitant]

REACTIONS (4)
  - Cerebral haemorrhage [Unknown]
  - Convulsion [Unknown]
  - Femur fracture [Unknown]
  - International normalised ratio decreased [Unknown]
